FAERS Safety Report 12140987 (Version 1)
Quarter: 2016Q1

REPORT INFORMATION
  Report Type: Spontaneous
  Country: JP (occurrence: JP)
  Receive Date: 20160303
  Receipt Date: 20160303
  Transmission Date: 20160526
  Serious: Yes (Other)
  Sender: FDA-Public Use
  Company Number: JP-ELI_LILLY_AND_COMPANY-JP201601008720

PATIENT
  Age: 69 Year
  Sex: Female

DRUGS (10)
  1. LANDSEN [Concomitant]
     Active Substance: CLONAZEPAM
  2. FAMOTIDINE. [Concomitant]
     Active Substance: FAMOTIDINE
     Dosage: UNK
  3. VITAMINS NOS [Concomitant]
     Active Substance: VITAMINS
  4. UBRETID [Concomitant]
     Active Substance: DISTIGMINE BROMIDE
  5. CYMBALTA [Suspect]
     Active Substance: DULOXETINE HYDROCHLORIDE
     Indication: DEPRESSION
     Dosage: 40 MG, QD
     Route: 048
     Dates: end: 20160118
  6. MAGMITT [Concomitant]
     Active Substance: MAGNESIUM OXIDE
  7. EBRANTIL                           /00631801/ [Concomitant]
     Active Substance: URAPIDIL
  8. GOSHAJINKIGAN [Concomitant]
     Active Substance: HERBALS
  9. CELECOX [Concomitant]
     Active Substance: CELECOXIB
  10. LORAZEPAM. [Concomitant]
     Active Substance: LORAZEPAM
     Dosage: UNK

REACTIONS (2)
  - Fracture [Recovering/Resolving]
  - Blood sodium decreased [Not Recovered/Not Resolved]

NARRATIVE: CASE EVENT DATE: 201511
